FAERS Safety Report 9628245 (Version 1)
Quarter: 2013Q4

REPORT INFORMATION
  Report Type: Report from Study
  Country: JP (occurrence: JP)
  Receive Date: 20131017
  Receipt Date: 20131017
  Transmission Date: 20140711
  Serious: Yes (Death, Hospitalization, Disabling)
  Sender: FDA-Public Use
  Company Number: JP-AMGEN-JPNCT2013072645

PATIENT
  Age: 63 Year
  Sex: Male
  Weight: 53 kg

DRUGS (16)
  1. DARBEPOETIN ALFA [Suspect]
     Indication: NEPHROGENIC ANAEMIA
     Dosage: 30 MUG, QD
     Route: 058
     Dates: start: 20101005, end: 20120110
  2. BAYASPIRIN [Concomitant]
     Dosage: UNK, *SINGLE
     Route: 048
  3. LASIX [Concomitant]
     Dosage: UNK
     Route: 048
  4. AVAPRO [Concomitant]
     Dosage: UNK
     Route: 048
  5. ADALAT [Concomitant]
     Dosage: UNK
     Route: 048
  6. STOGAR [Concomitant]
     Dosage: UNK
     Route: 048
  7. MEVALOTIN [Concomitant]
     Dosage: UNK
     Route: 048
  8. NITOROL R [Concomitant]
     Dosage: UNK
     Route: 048
  9. AMOBAN [Concomitant]
     Dosage: UNK
     Route: 048
  10. SENNOSIDE                          /00571901/ [Concomitant]
     Dosage: UNK
     Route: 048
  11. CARBADOGEN [Concomitant]
     Dosage: UNK
     Route: 048
  12. FLUITRAN [Concomitant]
     Dosage: UNK
     Route: 048
  13. FRANDOL S [Concomitant]
     Dosage: UNK
     Route: 061
  14. NOVORAPID MIX [Concomitant]
     Dosage: UNK
     Route: 042
  15. CHARCOAL [Concomitant]
     Dosage: UNK
     Route: 048
  16. KETOBUN A [Concomitant]
     Dosage: UNK
     Route: 048

REACTIONS (4)
  - Vitreous haemorrhage [Recovering/Resolving]
  - Cardiac failure congestive [Recovered/Resolved]
  - Acute myocardial infarction [Fatal]
  - Diabetic gangrene [Recovered/Resolved with Sequelae]
